FAERS Safety Report 5572166-1 (Version None)
Quarter: 2007Q4

REPORT INFORMATION
  Report Type: 
  Country: None (occurrence: None)
  Receive Date: 20071221
  Receipt Date: 20071213
  Transmission Date: 20080405
  Serious: Yes (Hospitalization)
  Sender: FDA-Public Use
  Company Number: US-ABBOTT-07P-163-0429933-00

PATIENT
  Sex: Male
  Weight: 92.616 kg

DRUGS (2)
  1. SYNTHROID [Suspect]
     Indication: HYPOTHYROIDISM
     Route: 048
     Dates: start: 20050101, end: 20071001
  2. SYNTHROID [Suspect]
     Route: 048
     Dates: start: 20071001, end: 20071211

REACTIONS (3)
  - CARDIAC FAILURE [None]
  - INCORRECT DOSE ADMINISTERED [None]
  - SENSORY DISTURBANCE [None]
